FAERS Safety Report 8812438 (Version 4)
Quarter: 2015Q2

REPORT INFORMATION
  Report Type: Report from Study
  Country: US (occurrence: US)
  Receive Date: 20120927
  Receipt Date: 20150401
  Transmission Date: 20150821
  Serious: Yes (Death)
  Sender: FDA-Public Use
  Company Number: US-ROCHE-1126050

PATIENT
  Age: 54 Year
  Sex: Male

DRUGS (20)
  1. AVASTIN [Suspect]
     Active Substance: BEVACIZUMAB
     Indication: BRAIN NEOPLASM MALIGNANT
     Route: 042
     Dates: start: 20080108
  2. AVASTIN [Suspect]
     Active Substance: BEVACIZUMAB
     Route: 042
     Dates: start: 20080602
  3. CARBOPLATIN. [Concomitant]
     Active Substance: CARBOPLATIN
     Route: 065
  4. AVASTIN [Suspect]
     Active Substance: BEVACIZUMAB
     Route: 042
  5. AVASTIN [Suspect]
     Active Substance: BEVACIZUMAB
     Route: 042
     Dates: start: 20080623
  6. KEPPRA [Concomitant]
     Active Substance: LEVETIRACETAM
     Route: 065
  7. CYTOXAN [Concomitant]
     Active Substance: CYCLOPHOSPHAMIDE
  8. RESTORIL [Concomitant]
     Active Substance: TEMAZEPAM
     Route: 048
  9. PROTONIX (UNITED STATES) [Concomitant]
     Route: 048
  10. DEXAMETHASONE. [Concomitant]
     Active Substance: DEXAMETHASONE
     Route: 065
  11. AVASTIN [Suspect]
     Active Substance: BEVACIZUMAB
     Route: 042
     Dates: start: 20080512
  12. IRINOTECAN [Concomitant]
     Active Substance: IRINOTECAN
  13. LIPITOR [Concomitant]
     Active Substance: ATORVASTATIN CALCIUM
     Route: 048
  14. RITALIN [Concomitant]
     Active Substance: METHYLPHENIDATE HYDROCHLORIDE
     Route: 048
  15. AMITRIPTYLINE [Concomitant]
     Active Substance: AMITRIPTYLINE
  16. VP-16 [Concomitant]
     Active Substance: ETOPOSIDE
  17. OXYCODONE [Concomitant]
     Active Substance: OXYCODONE
     Dosage: 5/325 MG
     Route: 048
  18. CARBOPLATIN. [Concomitant]
     Active Substance: CARBOPLATIN
     Route: 065
  19. CARBOPLATIN. [Concomitant]
     Active Substance: CARBOPLATIN
     Route: 065
  20. LISINOPRIL. [Concomitant]
     Active Substance: LISINOPRIL

REACTIONS (8)
  - Gait disturbance [Unknown]
  - Death [Fatal]
  - Asthenia [Unknown]
  - Fall [Unknown]
  - Headache [Unknown]
  - Balance disorder [Unknown]
  - Cognitive disorder [Unknown]
  - Visual impairment [Unknown]

NARRATIVE: CASE EVENT DATE: 20080909
